FAERS Safety Report 19233926 (Version 1)
Quarter: 2021Q2

REPORT INFORMATION
  Report Type: Spontaneous
  Country: US (occurrence: US)
  Receive Date: 20210508
  Receipt Date: 20210508
  Transmission Date: 20210717
  Serious: No
  Sender: FDA-Public Use
  Company Number: US-ASTRAZENECA-2021A375950

PATIENT
  Age: 17554 Day
  Sex: Female
  Weight: 117.9 kg

DRUGS (1)
  1. FASENRA [Suspect]
     Active Substance: BENRALIZUMAB
     Indication: ASTHMA
     Dosage: 30.0MG UNKNOWN
     Route: 058
     Dates: start: 2020

REACTIONS (12)
  - Flushing [Unknown]
  - Multiple allergies [Unknown]
  - Headache [Unknown]
  - Fatigue [Unknown]
  - Wheezing [Unknown]
  - Device leakage [Unknown]
  - Incorrect dose administered by device [Unknown]
  - Decreased activity [Unknown]
  - Intentional device misuse [Unknown]
  - Cough [Unknown]
  - Dyspnoea [Unknown]
  - Product use issue [Unknown]

NARRATIVE: CASE EVENT DATE: 20210428
